FAERS Safety Report 5937646-5 (Version None)
Quarter: 2008Q4

REPORT INFORMATION
  Report Type: 
  Country: None (occurrence: None)
  Receive Date: 20081031
  Receipt Date: 20081022
  Transmission Date: 20090506
  Serious: Yes (Other)
  Sender: FDA-Public Use
  Company Number: GB-JNJFOC-20081005740

PATIENT
  Sex: Female

DRUGS (2)
  1. DAKTARIN ORAL [Suspect]
     Route: 061
  2. DAKTARIN ORAL [Suspect]
     Indication: DRUG USE FOR UNKNOWN INDICATION
     Route: 061

REACTIONS (2)
  - ADRENAL INSUFFICIENCY [None]
  - HYPOGLYCAEMIA [None]
